FAERS Safety Report 17329936 (Version 1)
Quarter: 2020Q1

REPORT INFORMATION
  Report Type: Spontaneous
  Country: US (occurrence: US)
  Receive Date: 20200127
  Receipt Date: 20200127
  Transmission Date: 20200409
  Serious: No
  Sender: FDA-Public Use
  Company Number: None

PATIENT
  Sex: Female
  Weight: 131.4 kg

DRUGS (7)
  1. VENTOLIN HFA [Concomitant]
     Active Substance: ALBUTEROL SULFATE
  2. DEXAMTHASONE [Concomitant]
     Active Substance: DEXAMETHASONE
  3. IBRANCE [Suspect]
     Active Substance: PALBOCICLIB
     Indication: BREAST CANCER
     Route: 048
     Dates: start: 20180221, end: 20200127
  4. CLONAZEPAM. [Concomitant]
     Active Substance: CLONAZEPAM
  5. AMLODIPINE [Concomitant]
     Active Substance: AMLODIPINE BESYLATE
  6. TRULICITY [Concomitant]
     Active Substance: DULAGLUTIDE
  7. CELECOXIB 200MG [Concomitant]
     Active Substance: CELECOXIB

REACTIONS (1)
  - Malignant neoplasm progression [None]
